FAERS Safety Report 22010267 (Version 2)
Quarter: 2023Q1

REPORT INFORMATION
  Report Type: Spontaneous
  Country: JP (occurrence: JP)
  Receive Date: 20230220
  Receipt Date: 20230316
  Transmission Date: 20230418
  Serious: Yes (Death, Other)
  Sender: FDA-Public Use
  Company Number: JP-GSKJP-JP2023JPN016489AA

PATIENT

DRUGS (7)
  1. DAPRODUSTAT [Suspect]
     Active Substance: DAPRODUSTAT
     Indication: Nephrogenic anaemia
     Dosage: 4 MG
     Dates: end: 20221104
  2. THYRADIN (LEVOTHYROXINE SODIUM) [Concomitant]
     Indication: Hypothyroidism
     Dosage: UNK
  3. THYRADIN (LEVOTHYROXINE SODIUM) [Concomitant]
     Dosage: UNK, INCREASE
     Dates: start: 20221109
  4. NEXIUM [Concomitant]
     Active Substance: ESOMEPRAZOLE MAGNESIUM
     Indication: Prophylaxis against gastrointestinal ulcer
     Dosage: 20 MG
  5. AMLODIPINE BESYLATE [Concomitant]
     Active Substance: AMLODIPINE BESYLATE
     Indication: Hypertension
     Dosage: 5 MG, BID
  6. POTASSIUM ASPARTATE [Concomitant]
     Active Substance: POTASSIUM ASPARTATE
     Indication: Hypokalaemia
     Dosage: UNK
  7. MIYA-BM [Concomitant]
     Active Substance: CLOSTRIDIUM BUTYRICUM SPORES STRAIN M-55
     Indication: Prophylaxis against diarrhoea
     Dosage: UNK

REACTIONS (6)
  - Hypothyroidism [Unknown]
  - Condition aggravated [Unknown]
  - Fibrin D dimer increased [Unknown]
  - Thyroid hormones decreased [Unknown]
  - Pneumonia [Fatal]
  - Haemodialysis [Unknown]
